FAERS Safety Report 4607526-6 (Version None)
Quarter: 2005Q1

REPORT INFORMATION
  Report Type: 
  Country: None (occurrence: None)
  Receive Date: 20050310
  Receipt Date: 20050302
  Transmission Date: 20050727
  Serious: Yes (Life-Threatening, Hospitalization)
  Sender: FDA-Public Use
  Company Number: 2005-02-1248

PATIENT
  Age: 63 Year
  Sex: Male
  Weight: 72 kg

DRUGS (2)
  1. PEG-INTRON [Suspect]
     Indication: HEPATITIS C
     Dosage: 100 MCG QW SUBCUTANEOUS
     Route: 058
     Dates: start: 20050121, end: 20050128
  2. REBETOL [Suspect]
     Indication: HEPATITIS C
     Dosage: 800 MG ORAL
     Route: 048
     Dates: start: 20050121, end: 20050201

REACTIONS (6)
  - FEELING ABNORMAL [None]
  - ILEAL ULCER [None]
  - MELAENA [None]
  - SHOCK [None]
  - SMALL INTESTINAL ULCER HAEMORRHAGE [None]
  - VISUAL DISTURBANCE [None]
